FAERS Safety Report 22295139 (Version 1)
Quarter: 2023Q2

REPORT INFORMATION
  Report Type: Spontaneous
  Country: DE (occurrence: DE)
  Receive Date: 20230508
  Receipt Date: 20230508
  Transmission Date: 20230721
  Serious: Yes (Hospitalization, Other)
  Sender: FDA-Public Use
  Company Number: None

PATIENT
  Age: 38 Year
  Sex: Female
  Weight: 58 kg

DRUGS (1)
  1. SINGULAIR [Suspect]
     Active Substance: MONTELUKAST SODIUM
     Indication: Asthma
     Dosage: ONE TABLET IN THE MORNING
     Route: 048
     Dates: start: 20201001, end: 20230422

REACTIONS (18)
  - Hypophagia [Recovered/Resolved]
  - Oropharyngeal pain [Unknown]
  - Pyrexia [Recovered/Resolved]
  - Weight decreased [Unknown]
  - Epistaxis [Recovering/Resolving]
  - Rash [Recovering/Resolving]
  - Ear discomfort [Recovering/Resolving]
  - Vomiting [Unknown]
  - Illusion [Unknown]
  - Pharyngeal swelling [Recovering/Resolving]
  - Asthenia [Unknown]
  - Respiratory tract haemorrhage [Recovering/Resolving]
  - Mouth swelling [Recovering/Resolving]
  - Rash pruritic [Recovering/Resolving]
  - Dysphagia [Recovering/Resolving]
  - Pharyngitis [Recovering/Resolving]
  - Vomiting [Unknown]
  - General physical health deterioration [Unknown]

NARRATIVE: CASE EVENT DATE: 20230215
